FAERS Safety Report 16429546 (Version 3)
Quarter: 2019Q3

REPORT INFORMATION
  Report Type: Report from Study
  Country: KR (occurrence: KR)
  Receive Date: 20190614
  Receipt Date: 20190731
  Transmission Date: 20191004
  Serious: Yes (Hospitalization)
  Sender: FDA-Public Use
  Company Number: KR-CELLTRION INC.-2018KR024244

PATIENT

DRUGS (61)
  1. RAMUCIRUMAB [Suspect]
     Active Substance: RAMUCIRUMAB
     Dosage: 493 MG
     Route: 042
     Dates: start: 20190402, end: 20190422
  2. ATROVENT [Concomitant]
     Active Substance: IPRATROPIUM BROMIDE
     Indication: PNEUMONIA
     Dosage: 0.5 MG, TID
     Dates: start: 20190510, end: 20190517
  3. COMBIFLEX LIPID CENTRAL [Concomitant]
     Indication: SUPPORTIVE CARE
     Dosage: 1000 ML, QD
     Route: 042
     Dates: start: 20190510
  4. TRIDOL [Concomitant]
     Active Substance: TRAMADOL HYDROCHLORIDE
     Indication: PAIN
     Dosage: 50 MG, QD IVH
     Dates: start: 20190623
  5. SEPTRIN [Concomitant]
     Active Substance: SULFAMETHOXAZOLE\TRIMETHOPRIM
     Dosage: 2T, QD
     Route: 048
     Dates: start: 20190624, end: 20190626
  6. ALBUMIN (LJUDSKI) 20% [Concomitant]
     Dosage: 100 ML, QD
     Route: 042
     Dates: start: 20190624
  7. PENIRAMIN [Concomitant]
     Dosage: 4 MG, QD IVH
     Dates: start: 20190624
  8. GASTER [FAMOTIDINE] [Concomitant]
     Dosage: 20 MG, BID
     Route: 042
     Dates: start: 20190625, end: 20190627
  9. MACPERAN [Concomitant]
     Active Substance: METOCLOPRAMIDE HYDROCHLORIDE
     Dosage: 10 MG, QD
     Dates: start: 20190704, end: 20190712
  10. SMOFKABIVEN [Concomitant]
     Active Substance: AMINO ACIDS\DEXTROSE\ELECTROLYTES NOS\SOYBEAN OIL
     Indication: FLUID REPLACEMENT
     Dosage: 986 ML, QD
     Route: 042
     Dates: start: 20190701, end: 20190702
  11. URSA [Concomitant]
     Active Substance: URSODIOL
     Dosage: 100 MG, TID
     Route: 048
     Dates: start: 20190705, end: 20190712
  12. HERZUMA [Suspect]
     Active Substance: TRASTUZUMAB-PKRB
     Dosage: 108.4 MG
     Route: 042
     Dates: start: 20181130, end: 20181130
  13. COMBIFLEX LIPID CENTRAL [Concomitant]
     Indication: FLUID REPLACEMENT
     Dosage: 1000 ML, QD
     Route: 042
     Dates: start: 20190627, end: 20190630
  14. FURTMAN [Concomitant]
     Dosage: 0.4 ML
     Route: 042
     Dates: start: 20190624
  15. FURTMAN [Concomitant]
     Dosage: 0.5 ML, QD
     Route: 042
     Dates: start: 20190627, end: 20190630
  16. LAMINA-G [Concomitant]
     Dosage: 20 ML, TID
     Route: 048
     Dates: start: 20190622, end: 20190623
  17. PETHIDINE [Concomitant]
     Active Substance: MEPERIDINE
     Indication: PAIN
     Dosage: 25 MG, QD
     Route: 030
     Dates: start: 20190622
  18. PETHIDINE [Concomitant]
     Active Substance: MEPERIDINE
     Dosage: 25 MG, QD
     Route: 030
     Dates: start: 20190705
  19. TAMIPOOL [Concomitant]
     Active Substance: VITAMINS
     Dosage: 5 ML, QD
     Route: 042
     Dates: start: 20190625, end: 20190626
  20. RAMUCIRUMAB [Suspect]
     Active Substance: RAMUCIRUMAB
     Indication: HER-2 POSITIVE GASTRIC CANCER
     Dosage: 433.6 MG
     Route: 042
     Dates: start: 20181030, end: 20190312
  21. CODEINE [Concomitant]
     Active Substance: CODEINE
     Indication: PNEUMONIA
     Dosage: 200 MG, TID
     Route: 048
     Dates: start: 20190510
  22. FURTMAN [Concomitant]
     Indication: FLUID REPLACEMENT
     Dosage: 0.2 ML
     Route: 042
     Dates: start: 20190623
  23. TRIDOL [Concomitant]
     Active Substance: TRAMADOL HYDROCHLORIDE
     Dosage: 50 MG, QD IVH
     Dates: start: 20190705
  24. MUCOSTEN [Concomitant]
     Dosage: 600 MG, BID IVH
     Dates: start: 20190625, end: 20190705
  25. GODEX [ADENINE HYDROCHLORIDE;BIFENDATE;CARNITINE OROTATE;CYANOCOBALAMI [Concomitant]
     Dosage: 1C
     Route: 048
     Dates: start: 20190705, end: 20190712
  26. GENEXOL                            /00282201/ [Suspect]
     Active Substance: NONOXYNOL-10
     Dosage: 102 MG
     Route: 042
     Dates: start: 20190607, end: 20190617
  27. MUCOMYST [Concomitant]
     Active Substance: ACETYLCYSTEINE
     Indication: PNEUMONIA
     Dosage: 800 MG, TID
     Dates: start: 20190510, end: 20190517
  28. LANSTON [Concomitant]
     Active Substance: LANSOPRAZOLE
     Dosage: 15 MG, QD
     Route: 048
     Dates: start: 20190622, end: 20190623
  29. GRASIN [Concomitant]
     Indication: GASTRITIS PROPHYLAXIS
     Dosage: 300 MICROGRAM, QD
     Route: 058
     Dates: start: 20190624
  30. COUGH SYRUP [ANTIMONY POTASSIUM TARTRATE;PAPAVER SOMNIFERUM TINCTURE;T [Concomitant]
     Dosage: 2 ML, QD
     Route: 048
     Dates: start: 20190626, end: 20190627
  31. HERZUMA [Suspect]
     Active Substance: TRASTUZUMAB-PKRB
     Indication: HER-2 POSITIVE GASTRIC CANCER
     Dosage: 216.8 MG
     Route: 042
     Dates: start: 20181030, end: 20181030
  32. RAMUCIRUMAB [Suspect]
     Active Substance: RAMUCIRUMAB
     Dosage: 496 MG
     Route: 042
     Dates: start: 20190402, end: 20190617
  33. GENEXOL                            /00282201/ [Suspect]
     Active Substance: NONOXYNOL-10
     Dosage: 119 MG
     Route: 042
     Dates: start: 20190402, end: 20190523
  34. K-CONTIN [Concomitant]
     Dosage: 600 MG, TID
     Route: 048
     Dates: start: 20190622
  35. NEURONTIN [Concomitant]
     Active Substance: GABAPENTIN
     Dosage: 300 MG
     Route: 048
     Dates: start: 20190622, end: 20190623
  36. TAMIPOOL [Concomitant]
     Active Substance: VITAMINS
     Dosage: 5 ML, QD
     Route: 042
     Dates: start: 20190624
  37. CURAN [Concomitant]
     Active Substance: RANITIDINE HYDROCHLORIDE
     Dosage: 50 MG, BID
     Dates: start: 20190627, end: 20190709
  38. GENEXOL                            /00282201/ [Suspect]
     Active Substance: NONOXYNOL-10
     Dosage: 111.3 MG
     Route: 042
     Dates: start: 20181220, end: 20190312
  39. ERDOS [Concomitant]
     Active Substance: ERDOSTEINE
     Indication: PNEUMONIA
     Dosage: 300 MG, TID
     Route: 048
     Dates: start: 20190510
  40. PLASMA SOLUTION A [Concomitant]
     Indication: FLUID REPLACEMENT
     Dosage: 1000 ML, QD
     Route: 042
     Dates: start: 20190624, end: 20190626
  41. DEXTROSE 10% [Concomitant]
     Active Substance: DEXTROSE
     Indication: FLUID REPLACEMENT
     Dosage: 1000 ML, QD
     Route: 042
     Dates: start: 20190624
  42. ADELAVIN [Concomitant]
     Active Substance: FLAVIN ADENINE DINUCLEOTIDE
     Dosage: 2 ML, QD
     Route: 042
     Dates: start: 20190624
  43. HERZUMA [Suspect]
     Active Substance: TRASTUZUMAB-PKRB
     Dosage: 108.4 MG
     Route: 042
     Dates: start: 20181108, end: 20190326
  44. GENEXOL                            /00282201/ [Suspect]
     Active Substance: NONOXYNOL-10
     Indication: HER-2 POSITIVE GASTRIC CANCER
     Dosage: 127.2 MG
     Route: 042
     Dates: start: 20181030, end: 20181206
  45. FURTMAN [Concomitant]
     Indication: SUPPORTIVE CARE
     Dosage: 0.2 ML
     Route: 042
     Dates: start: 20190510, end: 20190516
  46. MVI 3 [Concomitant]
     Indication: SUPPORTIVE CARE
     Dosage: 5 ML
     Route: 042
     Dates: start: 20190510, end: 20190516
  47. BANAN [Concomitant]
     Active Substance: CEFPODOXIME PROXETIL
     Indication: PNEUMONIA
     Dosage: 100 MG, BID
     Route: 048
     Dates: start: 20190517
  48. TAMIPOOL [Concomitant]
     Active Substance: VITAMINS
     Indication: FLUID REPLACEMENT
     Dosage: 5 ML, QD
     Route: 042
     Dates: start: 20190623
  49. NEXIUM I.V. [Concomitant]
     Active Substance: ESOMEPRAZOLE SODIUM
     Dosage: 40 MG, QD
     Route: 042
     Dates: start: 20190624
  50. LASIX [Concomitant]
     Active Substance: FUROSEMIDE
     Dosage: 10 ML, QD
     Route: 042
     Dates: start: 20190626
  51. HERZUMA [Suspect]
     Active Substance: TRASTUZUMAB-PKRB
     Dosage: 124 MG
     Route: 042
     Dates: start: 20190402, end: 20190617
  52. CRAVIT [Concomitant]
     Active Substance: LEVOFLOXACIN
     Indication: PNEUMONIA
     Dosage: 750 MG, QD
     Route: 042
     Dates: start: 20190510, end: 20190517
  53. FURTMAN [Concomitant]
     Dosage: 0.5 ML, QD
     Route: 042
     Dates: start: 20190625, end: 20190626
  54. MEGACE [Concomitant]
     Active Substance: MEGESTROL ACETATE
     Dosage: 5 ML, QD
     Dates: start: 20190622, end: 20190623
  55. PETHIDINE [Concomitant]
     Active Substance: MEPERIDINE
     Dosage: 25 MG, QD
     Route: 030
     Dates: start: 20190711
  56. DENOGAN [Concomitant]
     Active Substance: PROPACETAMOL HYDROCHLORIDE
     Indication: PAIN
     Dosage: 1000 MG, QD IVH
     Dates: start: 20190622
  57. CLINIMIX [AMINO ACIDS NOS;ELECTROLYTES NOS;GLUCOSE] [Concomitant]
     Indication: FLUID REPLACEMENT
     Dosage: 1.5 L, QD
     Route: 042
     Dates: start: 20190622
  58. TAMIPOOL [Concomitant]
     Active Substance: VITAMINS
     Dosage: 5 ML, QD
     Route: 042
     Dates: start: 20190627, end: 20190630
  59. NEXIUM I.V. [Concomitant]
     Active Substance: ESOMEPRAZOLE SODIUM
     Indication: GASTRITIS PROPHYLAXIS
     Dosage: 40 MG, QD
     Route: 042
     Dates: start: 20190623
  60. ADELAVIN [Concomitant]
     Active Substance: FLAVIN ADENINE DINUCLEOTIDE
     Dosage: 2 ML, QD
     Route: 042
     Dates: start: 20190625, end: 20190701
  61. PHOSTEN [Concomitant]
     Dosage: 20 MG, QD
     Route: 042
     Dates: start: 20190625, end: 20190627

REACTIONS (5)
  - Septic shock [Recovered/Resolved]
  - Pneumonia [Recovered/Resolved]
  - Pleural effusion [Recovered/Resolved]
  - Biliary tract infection [Recovered/Resolved]
  - Pneumonia [Recovered/Resolved]

NARRATIVE: CASE EVENT DATE: 20181121
